FAERS Safety Report 11269343 (Version 2)
Quarter: 2015Q3

REPORT INFORMATION
  Report Type: Spontaneous
  Country: US (occurrence: US)
  Receive Date: 20150714
  Receipt Date: 20150728
  Transmission Date: 20151125
  Serious: Yes (Life-Threatening)
  Sender: FDA-Public Use
  Company Number: US-ROCHE-1606465

PATIENT
  Sex: Female
  Weight: 67.19 kg

DRUGS (9)
  1. LAMICTAL [Concomitant]
     Active Substance: LAMOTRIGINE
     Route: 065
     Dates: start: 20150622
  2. XOLAIR [Suspect]
     Active Substance: OMALIZUMAB
     Indication: ASTHMA
     Route: 058
     Dates: start: 20130209
  3. PROVENTIL HFA [Concomitant]
     Active Substance: ALBUTEROL SULFATE
     Dosage: 2 INH, ONCE EVERY 4-6 HOURS
     Route: 065
     Dates: start: 20141215
  4. CYMBALTA [Concomitant]
     Active Substance: DULOXETINE HYDROCHLORIDE
     Route: 065
     Dates: start: 20141123
  5. XOLAIR [Suspect]
     Active Substance: OMALIZUMAB
     Route: 058
     Dates: start: 20140725
  6. EPIPEN [Concomitant]
     Active Substance: EPINEPHRINE
     Route: 065
     Dates: start: 20130209
  7. SINGULAIR [Concomitant]
     Active Substance: MONTELUKAST SODIUM
     Route: 065
     Dates: start: 20150623
  8. VITAMIN D3 [Concomitant]
     Active Substance: CHOLECALCIFEROL
     Dosage: 50,000 U 1 CAP
     Route: 065
     Dates: start: 20140923
  9. LEVOCETIRIZINE [Concomitant]
     Active Substance: LEVOCETIRIZINE
     Dosage: 1/2-1 TAB PRN
     Route: 065
     Dates: start: 20140923

REACTIONS (1)
  - Anaphylactic reaction [Unknown]
